FAERS Safety Report 4845416-4 (Version None)
Quarter: 2005Q4

REPORT INFORMATION
  Report Type: 
  Country: None (occurrence: None)
  Receive Date: 20051125
  Receipt Date: 20051114
  Transmission Date: 20060501
  Serious: Yes (Hospitalization)
  Sender: FDA-Public Use
  Company Number: 2005156558

PATIENT
  Age: 75 Year
  Sex: Female

DRUGS (10)
  1. ATORVASTATIN CALCIUM [Suspect]
     Indication: ILL-DEFINED DISORDER
     Dosage: 10 MG, ORAL,YEARS
     Route: 048
  2. PANTOPRAZOLE SODIUM [Suspect]
     Indication: ILL-DEFINED DISORDER
     Dosage: 40 MG, ORAL
     Route: 048
     Dates: start: 20050310
  3. MIRTAZAPINE [Suspect]
     Indication: DEPRESSION
     Dosage: 30 MG, ORAL
     Route: 048
     Dates: start: 20050309, end: 20050509
  4. PLAVIX [Suspect]
     Indication: ILL-DEFINED DISORDER
     Dosage: 75 MG, ORAL, FOR YEARS
     Route: 048
  5. XANAF (ENALAPRIL MALEATE) [Suspect]
     Indication: HYPERTENSION
     Dosage: 15 MG, ORAL, FOR YEARS
     Route: 048
  6. DYTIDE H (HYDROCHLOROTHIAZIDE, TRIAMTERENE) [Suspect]
     Indication: ILL-DEFINED DISORDER
     Dosage: 25 MG, ORAL
     Route: 048
     Dates: start: 20050310
  7. LORAZEPAM [Concomitant]
  8. ZOLPIDEM TARTRATE [Concomitant]
  9. SOLIAN (AMISULPRIDE) [Concomitant]
  10. LEVOTHYROXINE SODIUM [Concomitant]

REACTIONS (7)
  - BLOOD OSMOLARITY DECREASED [None]
  - DRUG INTERACTION [None]
  - HYPONATRAEMIA [None]
  - INAPPROPRIATE ANTIDIURETIC HORMONE SECRETION [None]
  - PITUITARY HYPOPLASIA [None]
  - THIRST [None]
  - URINE OSMOLARITY INCREASED [None]
